FAERS Safety Report 6829027-7 (Version None)
Quarter: 2010Q3

REPORT INFORMATION
  Report Type: 
  Country: None (occurrence: None)
  Receive Date: 20100706
  Receipt Date: 20100622
  Transmission Date: 20110219
  Serious: Yes (Hospitalization)
  Sender: FDA-Public Use
  Company Number: AUR-APL-2010-01617

PATIENT
  Age: 46 Year
  Sex: Female

DRUGS (20)
  1. SIMVASTATIN [Suspect]
     Dosage: 40MG, DAILY,
  2. FUSIDIC ACID [Suspect]
     Indication: INFECTION
  3. ACETYLSALICYLIC ACID [Concomitant]
  4. ALU-CAP [Concomitant]
  5. CALCIUM ACETATE [Concomitant]
  6. CLONAZEPAM [Concomitant]
  7. DILTIAZEM HCL [Concomitant]
  8. ERYTHROPOIETIN UNITS, [Concomitant]
  9. FLUCLOXACIN [Concomitant]
  10. GENTAMICIN [Concomitant]
  11. IRON SUCROSE [Concomitant]
  12. NICORANDIL [Concomitant]
  13. PENICILLIN [Concomitant]
  14. GENTAMICIN [Concomitant]
  15. SERTRALINE HCL [Concomitant]
  16. WARFARIN SODIUM [Concomitant]
  17. ALFACALCIDOL [Concomitant]
  18. OROVITE [Concomitant]
  19. FOLIC ACID [Concomitant]
  20. MIXTARD HUMAN 70/30 [Concomitant]

REACTIONS (4)
  - ARTHRITIS BACTERIAL [None]
  - DIALYSIS [None]
  - PARAPARESIS [None]
  - RHABDOMYOLYSIS [None]
